FAERS Safety Report 6725187-7 (Version None)
Quarter: 2010Q2

REPORT INFORMATION
  Report Type: 
  Country: None (occurrence: None)
  Receive Date: 20100514
  Receipt Date: 20100502
  Transmission Date: 20101027
  Serious: Yes (Other)
  Sender: FDA-Public Use
  Company Number: PHFR2010GB00504

PATIENT
  Sex: Male

DRUGS (4)
  1. CLOZARIL [Suspect]
     Indication: SCHIZOPHRENIA
     Dosage: 800 MG/DAY
     Route: 048
     Dates: start: 20060927
  2. LITHIUM CARBONATE [Concomitant]
  3. OLANZAPINE [Concomitant]
  4. CITALOPRAM [Concomitant]

REACTIONS (4)
  - LOSS OF CONSCIOUSNESS [None]
  - PSYCHOTIC DISORDER [None]
  - SEDATION [None]
  - TREATMENT NONCOMPLIANCE [None]
